FAERS Safety Report 7284869-1 (Version None)
Quarter: 2011Q1

REPORT INFORMATION
  Report Type: 
  Country: None (occurrence: None)
  Receive Date: 20110210
  Receipt Date: 20110129
  Transmission Date: 20110831
  Serious: Yes (Other)
  Sender: FDA-Public Use
  Company Number: US-PAR PHARMACEUTICAL, INC-2011SCPR002665

PATIENT

DRUGS (5)
  1. VENLAFAXINE HCL [Suspect]
     Indication: MAJOR DEPRESSION
     Dosage: 75 MG, DAILY
     Route: 065
  2. PAROXETINE HCL [Suspect]
     Indication: MAJOR DEPRESSION
     Dosage: 10 MG, DAILY
     Route: 065
  3. BUPROPION HCL [Suspect]
     Indication: MAJOR DEPRESSION
     Dosage: UNK
     Route: 065
  4. CLONAZEPAM [Suspect]
     Indication: MAJOR DEPRESSION
     Dosage: 3 MG, DAILY
     Route: 065
  5. DULOXETIME HYDROCHLORIDE [Suspect]
     Indication: MAJOR DEPRESSION
     Dosage: 60 MG, DAILY
     Route: 065

REACTIONS (1)
  - DYSPHORIA [None]
